FAERS Safety Report 23103199 (Version 1)
Quarter: 2023Q4

REPORT INFORMATION
  Report Type: Report from Study
  Country: DE (occurrence: DE)
  Receive Date: 20231025
  Receipt Date: 20231025
  Transmission Date: 20240110
  Serious: Yes (Death, Hospitalization, Other)
  Sender: FDA-Public Use
  Company Number: None

PATIENT
  Age: 58 Year
  Sex: Female
  Weight: 81 kg

DRUGS (35)
  1. DOCETAXEL [Suspect]
     Active Substance: DOCETAXEL
     Indication: HER2 positive breast cancer
     Dosage: DAILY DOSE: 140.25 MG MILLGRAM(S) EVERY 3 WEEKS
     Dates: start: 20140331, end: 20140331
  2. TRASTUZUMAB [Suspect]
     Active Substance: TRASTUZUMAB
     Indication: Product used for unknown indication
     Dates: start: 20140331, end: 20140331
  3. PERJETA [Suspect]
     Active Substance: PERTUZUMAB
     Indication: HER2 positive breast cancer
     Dosage: LOADING DOSE
     Dates: start: 20140307, end: 20140307
  4. HERCEPTIN [Suspect]
     Active Substance: TRASTUZUMAB
     Indication: HER2 positive breast cancer
     Dosage: DAILY DOSE: 432 MG MILLGRAM(S) EVERY 3 WEEKS
     Dates: start: 20130422, end: 20130422
  5. CIPROHEXAL [Concomitant]
     Indication: Leukopenia
     Dosage: DAILY DOSE: 1000 MG MILLGRAM(S) EVERY DAYS
     Dates: start: 20140610, end: 20140617
  6. CIPROBAY [Concomitant]
     Indication: Neutropenia
     Dosage: DAILY DOSE: 1000 MG MILLGRAM(S) EVERY DAYS
     Dates: start: 20140319, end: 20140324
  7. LEVOTHYROXINE SODIUM [Concomitant]
     Active Substance: LEVOTHYROXINE SODIUM
     Indication: Hypothyroidism
     Dosage: DAILY DOSE: 75 MCG MICROGRAM(S) EVERY DAYS
  8. DEXAMETHASONE [Concomitant]
     Active Substance: DEXAMETHASONE
     Dosage: DAILY DOSE: 4 MG MILLGRAM(S) EVERY DAYS
     Dates: start: 20140411, end: 20140413
  9. POTASSIUM [Concomitant]
     Active Substance: POTASSIUM
     Indication: Hypokalaemia
  10. CLEMASTINE FUMARATE [Concomitant]
     Active Substance: CLEMASTINE FUMARATE
     Dosage: IN EACH CYCLE
     Dates: start: 20140331
  11. RANITIDINE HYDROCHLORIDE [Concomitant]
     Active Substance: RANITIDINE HYDROCHLORIDE
     Indication: Premedication
     Dates: start: 20140331
  12. TRASTUZUMAB [Suspect]
     Active Substance: TRASTUZUMAB
     Indication: Product used for unknown indication
     Dosage: LOADING DOSE
     Dates: start: 20140310, end: 20140310
  13. TRASTUZUMAB [Suspect]
     Active Substance: TRASTUZUMAB
     Indication: Product used for unknown indication
     Dates: start: 20140715, end: 20140715
  14. TRASTUZUMAB [Suspect]
     Active Substance: TRASTUZUMAB
     Indication: Product used for unknown indication
     Dates: start: 20140513, end: 20140624
  15. TRASTUZUMAB [Suspect]
     Active Substance: TRASTUZUMAB
     Indication: Product used for unknown indication
     Dates: end: 20140916
  16. DOCETAXEL [Suspect]
     Active Substance: DOCETAXEL
     Indication: Product used for unknown indication
     Dosage: DAILY DOSE: 138.75 MG MILLGRAM(S) EVERY 3 WEEKS
     Dates: start: 20140422, end: 20140422
  17. HERCEPTIN [Suspect]
     Active Substance: TRASTUZUMAB
     Indication: HER2 positive breast cancer
     Dosage: DAILY DOSE: 444 MG MILLGRAM(S) EVERY 3 WEEKS
     Dates: start: 20140331, end: 20140331
  18. DEXAMETHASONE [Concomitant]
     Active Substance: DEXAMETHASONE
     Dosage: DAILY DOSE: 4 MG MILLGRAM(S) EVERY DAYS
     Dates: start: 20140303, end: 20140310
  19. HERCEPTIN [Suspect]
     Active Substance: TRASTUZUMAB
     Indication: HER2 positive breast cancer
     Dosage: LOADING DOSE
     Dates: start: 20140310, end: 20140310
  20. CIPROBAY [Concomitant]
     Indication: Neutropenia
     Dosage: DAILY DOSE: 1000 MG MILLGRAM(S) EVERY DAYS
     Dates: start: 20140523, end: 20140527
  21. DEXAMETHASONE [Concomitant]
     Active Substance: DEXAMETHASONE
     Dosage: DAILY DOSE: 6 MG MILLGRAM(S) EVERY DAYS
     Dates: start: 20140408, end: 20140410
  22. CIPROBAY [Concomitant]
     Indication: Neutropenia
     Dosage: DAILY DOSE: 1000 MG MILLGRAM(S) EVERY DAYS
     Dates: start: 20140903, end: 20140907
  23. DEXAMETHASONE [Concomitant]
     Active Substance: DEXAMETHASONE
     Dosage: DAILY DOSE: 8 MG MILLGRAM(S) EVERY DAYS
     Dates: start: 20140303, end: 20140307
  24. HERCEPTIN [Suspect]
     Active Substance: TRASTUZUMAB
     Indication: HER2 positive breast cancer
     Dosage: DAILY DOSE: 486 MG MILLGRAM(S) EVERY 3 WEEKS
     Dates: start: 20140715, end: 20140715
  25. HERCEPTIN [Suspect]
     Active Substance: TRASTUZUMAB
     Indication: HER2 positive breast cancer
     Dosage: DAILY DOSE: 444 MG MILLGRAM(S) EVERY 3 WEEKS
     Dates: start: 20140513, end: 20140624
  26. PERJETA [Suspect]
     Active Substance: PERTUZUMAB
     Indication: HER2 positive breast cancer
     Dosage: MAINTENANCE DOSE
     Dates: start: 20140331, end: 20141013
  27. HERCEPTIN [Suspect]
     Active Substance: TRASTUZUMAB
     Indication: HER2 positive breast cancer
     Dates: start: 20140805, end: 20141013
  28. DEXAMETHASONE [Concomitant]
     Active Substance: DEXAMETHASONE
     Dates: start: 20140331
  29. DEXAMETHASONE [Concomitant]
     Active Substance: DEXAMETHASONE
     Dosage: DAILY DOSE: 138.75 MG MILLGRAM(S) EVERY 3 WEEKS
     Dates: start: 20140422, end: 20140422
  30. TRASTUZUMAB [Suspect]
     Active Substance: TRASTUZUMAB
     Indication: HER2 positive breast cancer
     Dates: start: 20130422, end: 20130422
  31. TRASTUZUMAB [Suspect]
     Active Substance: TRASTUZUMAB
     Indication: Product used for unknown indication
     Dates: start: 20140805, end: 20141013
  32. DOCETAXEL [Suspect]
     Active Substance: DOCETAXEL
     Indication: Product used for unknown indication
     Dosage: DAILY DOSE: 187 MG MILLGRAM(S) EVERY 3 WEEKS
     Dates: start: 20140603, end: 20140624
  33. DOCETAXEL [Suspect]
     Active Substance: DOCETAXEL
     Indication: Product used for unknown indication
     Dosage: DAILY DOSE: 140.25 MG MILLGRAM(S) EVERY 3 WEEKS
     Dates: start: 20140513, end: 20140513
  34. DOCETAXEL [Suspect]
     Active Substance: DOCETAXEL
     Indication: Product used for unknown indication
     Dosage: DAILY DOSE: 183 MG MILLGRAM(S) EVERY 3 WEEKS
     Dates: start: 20140826, end: 20140916
  35. DOCETAXEL [Suspect]
     Active Substance: DOCETAXEL
     Indication: HER2 positive breast cancer
     Dosage: DAILY DOSE: 116.4 MG MILLGRAM(S) EVERY 3 WEEKS
     Dates: start: 20140310, end: 20140310

REACTIONS (17)
  - Dysstasia [Not Recovered/Not Resolved]
  - Fall [Unknown]
  - Weight decreased [Not Recovered/Not Resolved]
  - Gait disturbance [Not Recovered/Not Resolved]
  - Diarrhoea [Recovered/Resolved]
  - Paraesthesia [Not Recovered/Not Resolved]
  - Vomiting [Recovered/Resolved]
  - Disorientation [Not Recovered/Not Resolved]
  - Visual impairment [Not Recovered/Not Resolved]
  - Metastases to central nervous system [Fatal]
  - Cerebral disorder [Fatal]
  - Neutropenia [Recovered/Resolved]
  - Dysarthria [Not Recovered/Not Resolved]
  - Balance disorder [Not Recovered/Not Resolved]
  - Fatigue [Not Recovered/Not Resolved]
  - Compression fracture [Not Recovered/Not Resolved]
  - Leukopenia [Recovered/Resolved]

NARRATIVE: CASE EVENT DATE: 20140312
